FAERS Safety Report 6889630-5 (Version None)
Quarter: 2010Q3

REPORT INFORMATION
  Report Type: 
  Country: None (occurrence: None)
  Receive Date: 20100730
  Receipt Date: 20080415
  Transmission Date: 20110219
  Serious: No
  Sender: FDA-Public Use
  Company Number: US-PFIZER INC-2008029903

PATIENT
  Sex: Female
  Weight: 90.909 kg

DRUGS (1)
  1. LIPITOR [Suspect]
     Indication: BLOOD CHOLESTEROL INCREASED
     Dates: start: 20071001

REACTIONS (2)
  - DRUG INEFFECTIVE [None]
  - METRORRHAGIA [None]
